FAERS Safety Report 20199710 (Version 2)
Quarter: 2024Q1

REPORT INFORMATION
  Report Type: Spontaneous
  Country: US (occurrence: US)
  Receive Date: 20211217
  Receipt Date: 20240201
  Transmission Date: 20240410
  Serious: No
  Sender: FDA-Public Use
  Company Number: US-NOVEN PHARMACEUTICALS, INC.-2020US008082

PATIENT
  Sex: Female
  Weight: 68.027 kg

DRUGS (3)
  1. ESTRADIOL [Suspect]
     Active Substance: ESTRADIOL
     Indication: Blood oestrogen decreased
     Dosage: 0.025 MG
     Route: 062
     Dates: start: 20201013, end: 202011
  2. ESTRADIOL [Suspect]
     Active Substance: ESTRADIOL
     Indication: Poor quality sleep
     Dosage: 0.0375 MG
     Route: 062
     Dates: start: 201811, end: 202010
  3. PROGESTERONE [Concomitant]
     Active Substance: PROGESTERONE
     Indication: Vaginal haemorrhage

REACTIONS (2)
  - Drug ineffective [Unknown]
  - Product availability issue [Not Recovered/Not Resolved]

NARRATIVE: CASE EVENT DATE: 20200101
